FAERS Safety Report 6612714-3 (Version None)
Quarter: 2010Q1

REPORT INFORMATION
  Report Type: 
  Country: None (occurrence: None)
  Receive Date: 20100303
  Receipt Date: 20100205
  Transmission Date: 20100710
  Serious: No
  Sender: FDA-Public Use
  Company Number: US-BAYER-201013996NA

PATIENT
  Age: 54 Year
  Sex: Female
  Weight: 109 kg

DRUGS (4)
  1. EOVIST [Suspect]
     Indication: NUCLEAR MAGNETIC RESONANCE IMAGING
     Dosage: TOTAL DAILY DOSE: 10 ML  UNIT DOSE: 10 ML
     Route: 042
     Dates: start: 20100205, end: 20100205
  2. AVASTIN [Concomitant]
  3. ASPIRIN [Concomitant]
  4. OXYGEN [Concomitant]
     Dosage: @ 3 LITERS
     Dates: start: 20100205, end: 20100205

REACTIONS (3)
  - DYSPNOEA [None]
  - HEPATIC PAIN [None]
  - PALPITATIONS [None]
